FAERS Safety Report 14816494 (Version 1)
Quarter: 2018Q2

REPORT INFORMATION
  Report Type: Spontaneous
  Country: US (occurrence: US)
  Receive Date: 20180426
  Receipt Date: 20180426
  Transmission Date: 20180711
  Serious: No
  Sender: FDA-Public Use
  Company Number: US-TEVA-2018-US-884946

PATIENT
  Age: 37 Year
  Sex: Male

DRUGS (8)
  1. LISINOPRIL. [Concomitant]
     Active Substance: LISINOPRIL
     Dosage: 20 MG DAILY
     Route: 048
  2. BUSPIRONE [Suspect]
     Active Substance: BUSPIRONE HYDROCHLORIDE
     Indication: NON-CARDIAC CHEST PAIN
     Route: 065
  3. GABAPENTIN. [Suspect]
     Active Substance: GABAPENTIN
     Indication: NON-CARDIAC CHEST PAIN
     Route: 065
  4. PAROXETINE. [Suspect]
     Active Substance: PAROXETINE
     Indication: NON-CARDIAC CHEST PAIN
     Dosage: NIGHTLY
     Route: 048
  5. SERTRALINE [Suspect]
     Active Substance: SERTRALINE HYDROCHLORIDE
     Indication: NON-CARDIAC CHEST PAIN
     Route: 065
  6. CYCLOBENZAPRINE. [Concomitant]
     Active Substance: CYCLOBENZAPRINE
     Dosage: 10 MG THREE TIMES DAILY
     Route: 048
  7. RANITIDINE. [Concomitant]
     Active Substance: RANITIDINE
     Route: 048
  8. MULTIVITAMIN [Concomitant]
     Active Substance: VITAMINS
     Dosage: DAILY
     Route: 048

REACTIONS (3)
  - Mental status changes [Unknown]
  - Dyspnoea [Unknown]
  - Vision blurred [Unknown]
